FAERS Safety Report 14843869 (Version 1)
Quarter: 2018Q2

REPORT INFORMATION
  Report Type: Spontaneous
  Country: US (occurrence: US)
  Receive Date: 20180503
  Receipt Date: 20180503
  Transmission Date: 20180711
  Serious: No
  Sender: FDA-Public Use
  Company Number: US-ABBVIE-18P-163-2273327-00

PATIENT
  Sex: Female

DRUGS (1)
  1. MAVYRET [Suspect]
     Active Substance: GLECAPREVIR\PIBRENTASVIR
     Indication: PRODUCT USED FOR UNKNOWN INDICATION
     Route: 048
     Dates: start: 201802, end: 201802

REACTIONS (6)
  - Pruritus [Recovering/Resolving]
  - Nausea [Recovering/Resolving]
  - Pharyngeal oedema [Recovering/Resolving]
  - Rash [Recovering/Resolving]
  - Wheezing [Recovering/Resolving]
  - Vomiting [Recovering/Resolving]
